FAERS Safety Report 6846017-9 (Version None)
Quarter: 2010Q3

REPORT INFORMATION
  Report Type: 
  Country: None (occurrence: None)
  Receive Date: 20100715
  Receipt Date: 20070902
  Transmission Date: 20110219
  Serious: No
  Sender: FDA-Public Use
  Company Number: US-PFIZER INC-2007074272

PATIENT
  Age: 44 Year
  Sex: Male
  Weight: 90.7 kg

DRUGS (4)
  1. CHANTIX [Suspect]
     Indication: SMOKING CESSATION THERAPY
     Dates: start: 20070801
  2. ANTIBIOTICS [Concomitant]
  3. PREDNISONE [Concomitant]
  4. TRAZODONE HYDROCHLORIDE [Concomitant]
     Indication: SLEEP DISORDER

REACTIONS (6)
  - ABNORMAL DREAMS [None]
  - NAUSEA [None]
  - POOR QUALITY SLEEP [None]
  - SEDATION [None]
  - SLEEP DISORDER [None]
  - SLUGGISHNESS [None]
